FAERS Safety Report 9412877 (Version 2)
Quarter: 2014Q1

REPORT INFORMATION
  Report Type: Spontaneous
  Country: GB (occurrence: GB)
  Receive Date: 20130722
  Receipt Date: 20140321
  Transmission Date: 20141002
  Serious: Yes (Disabling)
  Sender: FDA-Public Use
  Company Number: PHHY2013GB076465

PATIENT
  Age: 12 Year
  Sex: Female
  Weight: 71.4 kg

DRUGS (2)
  1. METHOTREXATE [Suspect]
     Indication: JUVENILE IDIOPATHIC ARTHRITIS
     Dosage: 17.5 MG, UNK
     Route: 048
     Dates: start: 20111114
  2. PREDNISOLONE [Concomitant]

REACTIONS (5)
  - Migraine [Recovered/Resolved]
  - Cyst [Unknown]
  - Sinus polyp [Unknown]
  - Epistaxis [Unknown]
  - Headache [Recovered/Resolved]
